FAERS Safety Report 8920477 (Version 2)
Quarter: 2012Q4

REPORT INFORMATION
  Report Type: Report from Study
  Country: US (occurrence: US)
  Receive Date: 20121121
  Receipt Date: 20121217
  Transmission Date: 20130627
  Serious: Yes (Hospitalization)
  Sender: FDA-Public Use
  Company Number: US-ABBOTT-12P-163-1008420-00

PATIENT
  Age: 58 None
  Sex: Female
  Weight: 79.68 kg

DRUGS (12)
  1. HUMIRA PEN [Suspect]
     Indication: CROHN^S DISEASE
     Dosage: Loading dose
     Dates: start: 20121023
  2. METFORMIN [Concomitant]
     Indication: DIABETES MELLITUS
  3. LIALDA [Concomitant]
     Indication: CROHN^S DISEASE
  4. IMURAN [Concomitant]
     Indication: CROHN^S DISEASE
  5. MULTIVITAMIN [Concomitant]
     Indication: PRODUCT USED FOR UNKNOWN INDICATION
  6. POTASSIUM [Concomitant]
     Indication: PRODUCT USED FOR UNKNOWN INDICATION
  7. BIOTIN [Concomitant]
     Indication: PRODUCT USED FOR UNKNOWN INDICATION
  8. COZAAR [Concomitant]
     Indication: BLOOD PRESSURE
  9. COZAAR [Concomitant]
  10. HYDROCHLOROTHIAZIDE [Concomitant]
     Indication: BLOOD PRESSURE
  11. METOPROLOL [Concomitant]
     Indication: PRODUCT USED FOR UNKNOWN INDICATION
     Dates: end: 201210
  12. METOPROLOL [Concomitant]
     Dates: start: 201210

REACTIONS (2)
  - Chest discomfort [Recovered/Resolved]
  - Hypertension [Recovered/Resolved]
